FAERS Safety Report 8518716-4 (Version None)
Quarter: 2012Q3

REPORT INFORMATION
  Report Type: 
  Country: None (occurrence: None)
  Receive Date: 20120718
  Receipt Date: 20120710
  Transmission Date: 20120928
  Serious: Yes (Hospitalization, Other)
  Sender: FDA-Public Use
  Company Number: PR-ABBOTT-12P-131-0943485-00

PATIENT
  Sex: Female
  Weight: 57.204 kg

DRUGS (8)
  1. ULTRACET [Concomitant]
     Indication: RHEUMATOID ARTHRITIS
     Route: 048
  2. NEURONTIN [Concomitant]
     Indication: RHEUMATOID ARTHRITIS
     Dosage: AT BEDTIME
     Route: 048
  3. UNKNOWN PILL FOR IRON [Concomitant]
     Indication: BLOOD IRON DECREASED
     Route: 048
     Dates: start: 20120605
  4. HUMIRA [Suspect]
     Indication: RHEUMATOID ARTHRITIS
     Route: 058
     Dates: end: 20120501
  5. LISINOPRIL [Concomitant]
     Indication: HYPERTENSION
     Route: 048
  6. SYNTHROID [Concomitant]
     Indication: THYROID DISORDER
     Dosage: DAILY
     Route: 048
  7. IBUPROFEN [Concomitant]
     Indication: RHEUMATOID ARTHRITIS
     Route: 048
  8. PREDNISONE [Concomitant]
     Indication: RHEUMATOID ARTHRITIS
     Dosage: DAILY
     Route: 048

REACTIONS (3)
  - SCAR [None]
  - BLOOD IRON DECREASED [None]
  - KNEE ARTHROPLASTY [None]
